FAERS Safety Report 12272007 (Version 1)
Quarter: 2016Q2

REPORT INFORMATION
  Report Type: Spontaneous
  Country: US (occurrence: US)
  Receive Date: 20160415
  Receipt Date: 20160415
  Transmission Date: 20160815
  Serious: No
  Sender: FDA-Public Use
  Company Number: US-FERRINGPH-2015FE02300

PATIENT
  Age: 66 Year
  Sex: Male
  Weight: 90.7 kg

DRUGS (6)
  1. LOSARTAN. [Concomitant]
     Active Substance: LOSARTAN
  2. METOPROLOL. [Concomitant]
     Active Substance: METOPROLOL
  3. FIRMAGON [Suspect]
     Active Substance: DEGARELIX ACETATE
     Indication: PROSTATE CANCER
     Dosage: 240 MG, ONCE/SINGLE LOADING DOSE
     Route: 051
     Dates: start: 201503, end: 201503
  4. LIPITOR [Concomitant]
     Active Substance: ATORVASTATIN CALCIUM
  5. RANEXA [Concomitant]
     Active Substance: RANOLAZINE
  6. FIRMAGON [Suspect]
     Active Substance: DEGARELIX ACETATE
     Dosage: 80 MG, MONTHLY
     Dates: start: 201504

REACTIONS (3)
  - Erectile dysfunction [Not Recovered/Not Resolved]
  - Hot flush [Not Recovered/Not Resolved]
  - Penile size reduced [Not Recovered/Not Resolved]

NARRATIVE: CASE EVENT DATE: 20150505
